FAERS Safety Report 13534358 (Version 1)
Quarter: 2017Q2

REPORT INFORMATION
  Report Type: Spontaneous
  Country: US (occurrence: US)
  Receive Date: 20170510
  Receipt Date: 20170510
  Transmission Date: 20170830
  Serious: Yes (Other)
  Sender: FDA-Public Use
  Company Number: None

PATIENT
  Age: 70 Year
  Sex: Male
  Weight: 77.63 kg

DRUGS (1)
  1. LAMICTAL GENERIC [Suspect]
     Active Substance: LAMOTRIGINE
     Indication: BIPOLAR I DISORDER
     Dosage: 2 TABS AT BEDTIME
     Route: 048
     Dates: start: 20130412

REACTIONS (5)
  - Irritability [None]
  - Product substitution issue [None]
  - Poor quality sleep [None]
  - Depressed mood [None]
  - Asthenia [None]

NARRATIVE: CASE EVENT DATE: 20170503
